FAERS Safety Report 16813156 (Version 1)
Quarter: 2019Q3

REPORT INFORMATION
  Report Type: Other
  Country: US (occurrence: US)
  Receive Date: 20190916
  Receipt Date: 20190916
  Transmission Date: 20191005
  Serious: No
  Sender: FDA-Public Use
  Company Number: US-LEADIANT BIOSCIENCES INC-2019STPI000218

PATIENT
  Sex: Female

DRUGS (6)
  1. PROPRANOLOL [Concomitant]
     Active Substance: PROPRANOLOL HYDROCHLORIDE
  2. POTASSIUM [Concomitant]
     Active Substance: POTASSIUM
  3. FLUTICASONE. [Concomitant]
     Active Substance: FLUTICASONE
  4. SIMVASTATIN. [Concomitant]
     Active Substance: SIMVASTATIN
  5. TYLENOL 8HR [Concomitant]
     Active Substance: ACETAMINOPHEN
  6. MATULANE [Suspect]
     Active Substance: PROCARBAZINE HYDROCHLORIDE
     Indication: BRAIN NEOPLASM MALIGNANT
     Dosage: 50MG, QD DAYS 8  TO 21 OF 42 DAY CYCLE
     Route: 048
     Dates: start: 20200531

REACTIONS (2)
  - Fatigue [Unknown]
  - Nausea [Unknown]
